FAERS Safety Report 6658958 (Version 2)
Quarter: 2013Q1

REPORT INFORMATION
  Report Type: Spontaneous
  Country: US (occurrence: US)
  Receive Date: 20080606
  Receipt Date: 20130214
  Transmission Date: 20140127
  Serious: Yes (Other)
  Sender: FDA-Public Use
  Company Number: US-ASTRAZENECA-2007UW06482

PATIENT
  Age: 69 Year
  Sex: Female
  Weight: 65.8 kg

DRUGS (25)
  1. HYOSCYAMINE [Concomitant]
     Indication: DYSPEPSIA
  2. WELLBUTRIN [Concomitant]
  3. PRILOSEC OTC [Suspect]
     Indication: GASTROOESOPHAGEAL REFLUX DISEASE
     Route: 048
     Dates: start: 20060930, end: 20070212
  4. NEXIUM [Suspect]
     Route: 048
  5. LISINOPRIL [Suspect]
     Route: 048
  6. CRESTOR [Suspect]
     Route: 048
     Dates: start: 20110729
  7. TYLENOL EXTRA STRENGTH [Concomitant]
     Indication: PAIN
     Dosage: 1000 MG EVERY 6 HOURS AS NEEDED, MAXIMUM DOSE 3000 MG
     Route: 048
  8. PROVENTIL HFA [Concomitant]
     Dosage: 2 PUFFS EVERY 4 HOURS AS NEEDED
     Route: 055
  9. VENTOLIN HFA [Concomitant]
     Dosage: 2 PUFFS EVERY 4 HOURS AS NEEDED
     Route: 055
  10. PROVENTIL [Concomitant]
     Indication: WHEEZING
     Dosage: 2.5 MG/3 ML, 3 ML EVERY 6 HOURS AS NEEDED
     Dates: start: 20110829
  11. PROVENTIL [Concomitant]
     Indication: DYSPNOEA
     Dosage: 2.5 MG/3 ML, 3 ML EVERY 6 HOURS AS NEEDED
     Dates: start: 20110829
  12. QVAR [Concomitant]
     Dosage: 2 PUFFS TWO TIMES DAILY
     Route: 055
  13. TUMS [Concomitant]
     Indication: DYSPEPSIA
     Route: 048
  14. CITRACAL + D [Concomitant]
     Dosage: 315-200 MG-UNIT, 1 TABLET DAILY
     Route: 048
  15. COREG [Concomitant]
     Dosage: 3.125 MG TWO TIMES A DAY WITH MEALS
     Route: 048
  16. CHOLECALCIFEROL, VITAMIN D3 [Concomitant]
     Dosage: 4 TABLETS DAILY OCTOBER THRU MAY, 2 TABLETS DAILY JUNE THRU SEPTEMBER
     Route: 048
  17. CELEXA [Concomitant]
     Route: 048
     Dates: start: 20110720
  18. WELCHOL [Concomitant]
     Indication: DIARRHOEA
     Dosage: 625 MG TWO TIMES  DAILY WITH MEALS
     Route: 048
     Dates: start: 20110523
  19. BOOST [Concomitant]
     Indication: MEDICAL DIET
     Dosage: 1 CAN EVERY OTHER DAY
     Route: 048
  20. ENSURE [Concomitant]
     Indication: MEDICAL DIET
     Dosage: 1 CAN EVERY OTHER DAY
     Route: 048
  21. GLUCOPHAGE-XR [Concomitant]
     Dosage: 2 TABLETS DAILY WITH BREAKFAST
     Route: 048
     Dates: start: 20110729
  22. LIQUID TEARS OPHT [Concomitant]
     Dosage: APPLY TO EYE AS NEEDED
     Route: 047
  23. FORTEO [Concomitant]
     Dosage: 600 MCG/2.4 ML, INJECT INTO SKIN EVERY EVENING
     Route: 058
  24. SPIRIVA [Concomitant]
     Route: 055
  25. SANCTURA XR [Concomitant]
     Route: 048

REACTIONS (11)
  - Small intestinal perforation [Recovered/Resolved]
  - Type 2 diabetes mellitus [Unknown]
  - Hyperlipidaemia [Unknown]
  - Chronic obstructive pulmonary disease [Unknown]
  - Asthma [Unknown]
  - Oesophageal motility disorder [Unknown]
  - Cardiomyopathy [Unknown]
  - Irritable bowel syndrome [Unknown]
  - Osteoporosis [Unknown]
  - Gastrooesophageal reflux disease [Unknown]
  - Depression [Unknown]
